FAERS Safety Report 23983336 (Version 1)
Quarter: 2024Q2

REPORT INFORMATION
  Report Type: Report from Study
  Country: US (occurrence: US)
  Receive Date: 20240617
  Receipt Date: 20240617
  Transmission Date: 20240715
  Serious: Yes (Death, Hospitalization)
  Sender: FDA-Public Use
  Company Number: US-ABBVIE-5801140

PATIENT
  Sex: Male
  Weight: 65 kg

DRUGS (1)
  1. CREON [Suspect]
     Active Substance: PANCRELIPASE AMYLASE\PANCRELIPASE LIPASE\PANCRELIPASE PROTEASE
     Indication: Pancreatic failure
     Dosage: FORM STRENGTH: 36000 UNIT?2 PER MEAL AND 1 PER SNACK
     Route: 048
     Dates: start: 20240228, end: 20240605

REACTIONS (3)
  - Sepsis [Fatal]
  - Complicated appendicitis [Fatal]
  - Cardiac failure [Fatal]
